FAERS Safety Report 10483180 (Version 4)
Quarter: 2015Q1

REPORT INFORMATION
  Report Type: Report from Study
  Country: US (occurrence: US)
  Receive Date: 20140930
  Receipt Date: 20150220
  Transmission Date: 20150720
  Serious: Yes (Hospitalization)
  Sender: FDA-Public Use
  Company Number: US-BIOGENIDEC-2014BI099087

PATIENT
  Age: 54 Year
  Sex: Female

DRUGS (16)
  1. ADVAIR DISKUS [Concomitant]
     Active Substance: FLUTICASONE PROPIONATE\SALMETEROL XINAFOATE
  2. FLUOXETINE [Concomitant]
     Active Substance: FLUOXETINE\FLUOXETINE HYDROCHLORIDE
  3. AVONEX [Suspect]
     Active Substance: INTERFERON BETA-1A
     Indication: MULTIPLE SCLEROSIS
     Route: 030
     Dates: start: 20090206
  4. LACTULOSE. [Concomitant]
     Active Substance: LACTULOSE
  5. AVONEX [Suspect]
     Active Substance: INTERFERON BETA-1A
     Indication: MULTIPLE SCLEROSIS
     Route: 030
     Dates: start: 201212, end: 201411
  6. BUPROPION ER [Concomitant]
     Active Substance: BUPROPION
  7. AMITIZA [Concomitant]
     Active Substance: LUBIPROSTONE
  8. OXYCODONE HCL [Concomitant]
     Active Substance: OXYCODONE HYDROCHLORIDE
  9. OXYCONTIN [Concomitant]
     Active Substance: OXYCODONE HYDROCHLORIDE
  10. LYRICA [Concomitant]
     Active Substance: PREGABALIN
  11. LASIX [Concomitant]
     Active Substance: FUROSEMIDE
  12. ASPIRIN. [Concomitant]
     Active Substance: ASPIRIN
  13. BUPROPION SR [Concomitant]
     Active Substance: BUPROPION
  14. SIMVASTATIN. [Concomitant]
     Active Substance: SIMVASTATIN
  15. LOVAZA [Concomitant]
     Active Substance: OMEGA-3-ACID ETHYL ESTERS
  16. SPIRIVA [Concomitant]
     Active Substance: TIOTROPIUM BROMIDE MONOHYDRATE

REACTIONS (14)
  - Electrolyte depletion [Unknown]
  - Drug dose omission [Recovered/Resolved]
  - Osteomyelitis [Unknown]
  - Protein total decreased [Unknown]
  - Sleep disorder [Unknown]
  - Surgery [Not Recovered/Not Resolved]
  - Back pain [Unknown]
  - Depression [Unknown]
  - Decubitus ulcer [Not Recovered/Not Resolved]
  - Wound [Not Recovered/Not Resolved]
  - Multiple sclerosis [Not Recovered/Not Resolved]
  - Balance disorder [Not Recovered/Not Resolved]
  - Fall [Recovered/Resolved]
  - Myalgia [Unknown]

NARRATIVE: CASE EVENT DATE: 2014
